FAERS Safety Report 24056199 (Version 2)
Quarter: 2024Q3

REPORT INFORMATION
  Report Type: Report from Study
  Country: US (occurrence: None)
  Receive Date: 20240705
  Receipt Date: 20240805
  Transmission Date: 20241017
  Serious: Yes (Hospitalization)
  Sender: ASTRAZENECA
  Company Number: 2024A150026

PATIENT
  Sex: Female
  Weight: 72 kg

DRUGS (1)
  1. TRUQAP [Suspect]
     Active Substance: CAPIVASERTIB
     Indication: Breast cancer female
     Route: 048

REACTIONS (5)
  - Blood pressure increased [Unknown]
  - Glycosylated haemoglobin increased [Unknown]
  - Decubitus ulcer [Unknown]
  - Pain [Unknown]
  - Vomiting [Unknown]
